FAERS Safety Report 8457819-X (Version None)
Quarter: 2012Q2

REPORT INFORMATION
  Report Type: 
  Country: None (occurrence: None)
  Receive Date: 20120622
  Receipt Date: 20120612
  Transmission Date: 20120825
  Serious: Yes (Hospitalization)
  Sender: FDA-Public Use
  Company Number: US-BAYER-2012-014280

PATIENT
  Sex: Female
  Weight: 124.72 kg

DRUGS (17)
  1. ACETAMINOPHEN [Concomitant]
  2. ABILIFY [Concomitant]
     Indication: BIPOLAR DISORDER
  3. YASMIN [Suspect]
  4. ABILIFY [Concomitant]
     Indication: DEPRESSION
     Dosage: UNK
     Dates: start: 20080101, end: 20100101
  5. YAZ [Suspect]
     Indication: PREMENSTRUAL SYNDROME
  6. LEVOTHYROXINE [Concomitant]
  7. DEPAKOTE [Concomitant]
     Indication: BIPOLAR DISORDER
  8. YASMIN [Suspect]
     Indication: PREMENSTRUAL SYNDROME
  9. NAPROXEN [Concomitant]
  10. EFFEXOR [Concomitant]
     Indication: DEPRESSION
     Dosage: UNK
     Dates: start: 20090101, end: 20100101
  11. YAZ [Suspect]
     Indication: ACNE
     Dosage: UNK
     Dates: start: 20070101, end: 20100101
  12. DEPAKOTE [Concomitant]
     Indication: DEPRESSION
     Dosage: UNK
     Dates: start: 20080101, end: 20100101
  13. WELLBUTRIN [Concomitant]
  14. FLEXERIL [Concomitant]
  15. YAZ [Suspect]
  16. YASMIN [Suspect]
     Indication: ACNE
     Dosage: UNK
     Dates: start: 20070101, end: 20100101
  17. LAMICROL [Concomitant]
     Indication: BIPOLAR DISORDER
     Dosage: UNK
     Dates: start: 20090101

REACTIONS (10)
  - INJURY [None]
  - ANXIETY [None]
  - ANHEDONIA [None]
  - CHOLECYSTITIS CHRONIC [None]
  - BILE DUCT STONE [None]
  - BIPOLAR DISORDER [None]
  - DEPRESSION [None]
  - PAIN [None]
  - SUICIDAL IDEATION [None]
  - CHOLELITHIASIS [None]
